FAERS Safety Report 10159268 (Version 1)
Quarter: 2014Q2

REPORT INFORMATION
  Report Type: Spontaneous
  Country: US (occurrence: US)
  Receive Date: 20140508
  Receipt Date: 20140508
  Transmission Date: 20141212
  Serious: Yes (Death)
  Sender: FDA-Public Use
  Company Number: US-AMGEN-USASP2014032175

PATIENT
  Age: 49 Year
  Sex: Male

DRUGS (1)
  1. NPLATE [Suspect]
     Indication: NASAL SINUS CANCER
     Dosage: 250 MUG, QWK
     Route: 058

REACTIONS (1)
  - Death [Fatal]
